FAERS Safety Report 8490645-4 (Version None)
Quarter: 2012Q3

REPORT INFORMATION
  Report Type: 
  Country: None (occurrence: None)
  Receive Date: 20120705
  Receipt Date: 20120626
  Transmission Date: 20120928
  Serious: Yes (Other)
  Sender: FDA-Public Use
  Company Number: IT-CELGENEUS-083-21880-12010262

PATIENT
  Sex: Female

DRUGS (14)
  1. ORAMORPH SR [Concomitant]
     Route: 065
  2. BISOPROLOL FUMARATE [Concomitant]
     Dosage: 1 TABLET
     Route: 048
  3. REVLIMID [Suspect]
     Indication: MULTIPLE MYELOMA
     Dosage: 10 MILLIGRAM
     Route: 048
     Dates: start: 20050921, end: 20060517
  4. THALIDOMIDE [Suspect]
     Indication: MULTIPLE MYELOMA
     Dosage: 50 MILLIGRAM
     Route: 048
     Dates: start: 20110527, end: 20120215
  5. ALLOPURINOL [Concomitant]
     Dosage: 1/2 TABLET
     Route: 048
  6. METOCLOPRAMIDE HYDROCHLORIDE [Concomitant]
     Route: 048
  7. MOVIPREP [Concomitant]
     Route: 065
  8. DOBETIN [Concomitant]
     Route: 065
  9. DEXAMETHASONE SODIUM PHOSPHATE [Concomitant]
     Indication: CHEMOTHERAPY
     Route: 048
     Dates: start: 20110527, end: 20120201
  10. DELORAZEPAM [Concomitant]
     Dosage: 5-10 DROPS
     Route: 048
  11. PURSENNID [Concomitant]
     Route: 048
  12. BUPRENORPHINE [Concomitant]
     Dosage: 1260 MICROGRAM
     Route: 062
  13. CITALOPRAM HYDROBROMIDE [Concomitant]
     Dosage: 6 DROPS EVENING/4 DROPS MORNNING
     Route: 048
  14. RABEPRAZOLE SODIUM [Concomitant]
     Dosage: 1 TABLET
     Route: 048

REACTIONS (1)
  - BASAL CELL CARCINOMA [None]
